FAERS Safety Report 5216504-8 (Version None)
Quarter: 2007Q1

REPORT INFORMATION
  Report Type: 
  Country: None (occurrence: None)
  Receive Date: 20070118
  Receipt Date: 20070103
  Transmission Date: 20070707
  Serious: Yes (Hospitalization)
  Sender: FDA-Public Use
  Company Number: S07-FRA-00155-01

PATIENT
  Age: 52 Year
  Sex: Female
  Weight: 90 kg

DRUGS (4)
  1. SEROPLEX (ESCITALOPRAM) [Suspect]
     Dosage: 0.5 QD PO
     Route: 048
     Dates: start: 20060104
  2. LEXOMIL (BROMAZEPAM) [Suspect]
     Dates: start: 20051001
  3. CERAZETTE (DESOGESTREL) [Suspect]
     Dosage: 1 QD PO
     Route: 048
     Dates: start: 20020101
  4. DEPAKOTE [Suspect]
     Dosage: 500 MG QD PO
     Route: 048
     Dates: start: 20060104

REACTIONS (2)
  - PHLEBITIS [None]
  - PULMONARY EMBOLISM [None]
